FAERS Safety Report 13535036 (Version 2)
Quarter: 2017Q2

REPORT INFORMATION
  Report Type: Other
  Country: IT (occurrence: IT)
  Receive Date: 20170511
  Receipt Date: 20170516
  Transmission Date: 20170830
  Serious: Yes (Other)
  Sender: FDA-Public Use
  Company Number: IT-APOTEX-2017AP011657

PATIENT
  Age: 55 Year
  Sex: Female

DRUGS (2)
  1. QUETIAPINA DOC GENERICI COMPRESSE RIVESTITE CON FILM [Suspect]
     Active Substance: QUETIAPINE
     Indication: DRUG USE DISORDER
     Dosage: 40 DF, TOTAL
     Route: 048
  2. FLUNOX [Suspect]
     Active Substance: FLURAZEPAM HYDROCHLORIDE
     Indication: PRODUCT USED FOR UNKNOWN INDICATION
     Dosage: 3 DF, TOTAL
     Route: 048

REACTIONS (2)
  - Drug use disorder [Unknown]
  - Sopor [Unknown]

NARRATIVE: CASE EVENT DATE: 20170319
